FAERS Safety Report 5317195-8 (Version None)
Quarter: 2007Q2

REPORT INFORMATION
  Report Type: 
  Country: None (occurrence: None)
  Receive Date: 20070504
  Receipt Date: 20070427
  Transmission Date: 20071010
  Serious: Yes (Hospitalization, Other)
  Sender: FDA-Public Use
  Company Number: PL-PFIZER INC-2007023505

PATIENT
  Sex: Male
  Weight: 84 kg

DRUGS (6)
  1. SU-011,248 [Suspect]
     Indication: METASTATIC RENAL CELL CARCINOMA
     Route: 048
     Dates: start: 20060508, end: 20070214
  2. DURAGESIC-100 [Concomitant]
     Route: 062
  3. KALDYUM [Concomitant]
     Route: 048
     Dates: start: 20061031
  4. OMEPRAZOLE [Concomitant]
     Route: 048
     Dates: start: 20061031
  5. DEXAMETHASONE 0.5MG TAB [Concomitant]
     Route: 048
     Dates: start: 20061117
  6. TORECAN [Concomitant]
     Route: 048
     Dates: start: 20070118

REACTIONS (1)
  - MYOCARDIAL INFARCTION [None]
